FAERS Safety Report 9789933 (Version 1)
Quarter: 2013Q4

REPORT INFORMATION
  Report Type: Spontaneous
  Country: GB (occurrence: None)
  Receive Date: 20131227
  Receipt Date: 20131227
  Transmission Date: 20140711
  Serious: Yes (Disabling)
  Sender: FDA-Public Use
  Company Number: 2013-004057

PATIENT
  Age: 53 Year
  Sex: Female
  Weight: 114 kg

DRUGS (4)
  1. SARAFEM [Suspect]
     Dosage: 20 MG, UNK, ORAL
     Route: 048
     Dates: start: 20070430, end: 201205
  2. SALBUTAMOL (SALBUTAMOL) [Concomitant]
  3. SERETIDE (FLUTICASONE PROPIONATE, SALMETEROL XINAFOATE)? [Concomitant]
  4. DICLOFENAC (DICLOFENAC) [Concomitant]

REACTIONS (3)
  - Torticollis [None]
  - Pain [None]
  - Muscle spasms [None]
